FAERS Safety Report 7464579-8 (Version None)
Quarter: 2011Q1

REPORT INFORMATION
  Report Type: 
  Country: None (occurrence: None)
  Receive Date: 20110302
  Receipt Date: 20100723
  Transmission Date: 20110831
  Serious: Yes (Life-Threatening, Hospitalization)
  Sender: FDA-Public Use
  Company Number: 163-21880-10072218

PATIENT
  Age: 74 Year
  Sex: Male
  Weight: 83.5 kg

DRUGS (1)
  1. REVLIMID [Suspect]
     Indication: MYELODYSPLASTIC SYNDROME
     Dosage: 5 MG, ALTERNATING DAYS, PO
     Route: 048
     Dates: start: 20100714

REACTIONS (3)
  - HAEMOGLOBIN DECREASED [None]
  - HICCUPS [None]
  - PLATELET COUNT DECREASED [None]
